FAERS Safety Report 8551083-9 (Version None)
Quarter: 2012Q3

REPORT INFORMATION
  Report Type: 
  Country: None (occurrence: None)
  Receive Date: 20120730
  Receipt Date: 20120720
  Transmission Date: 20120928
  Serious: Yes (Other)
  Sender: FDA-Public Use
  Company Number: JP-VERTEX PHARMACEUTICALS INC.-AE-2012-010909

PATIENT
  Age: 59 Year
  Sex: Female

DRUGS (7)
  1. RIBAVIRIN [Concomitant]
     Route: 048
     Dates: start: 20120607, end: 20120627
  2. PEGINTERFERON ALFA-2B [Concomitant]
     Route: 058
     Dates: start: 20120517
  3. GLYCYRON [Concomitant]
     Route: 048
     Dates: end: 20120613
  4. URSO 250 [Concomitant]
     Route: 048
     Dates: end: 20120613
  5. TELAVIC (TELAPREVIR) [Suspect]
     Indication: HEPATITIS C
     Route: 048
     Dates: start: 20120517, end: 20120620
  6. TELAVIC (TELAPREVIR) [Suspect]
     Route: 048
     Dates: start: 20120621
  7. RIBAVIRIN [Concomitant]
     Route: 048
     Dates: start: 20120517, end: 20120606

REACTIONS (5)
  - CHEILITIS [None]
  - INSOMNIA [None]
  - HYPERURICAEMIA [None]
  - HYPERCREATININAEMIA [None]
  - DRUG ERUPTION [None]
